FAERS Safety Report 25429119 (Version 3)
Quarter: 2025Q3

REPORT INFORMATION
  Report Type: Spontaneous
  Country: EU (occurrence: EU)
  Receive Date: 20250612
  Receipt Date: 20250708
  Transmission Date: 20251021
  Serious: Yes (Other)
  Sender: ABBVIE
  Company Number: EU-ABBVIE-6317845

PATIENT
  Age: 32 Year
  Sex: Male

DRUGS (3)
  1. SKYRIZI [Suspect]
     Active Substance: RISANKIZUMAB-RZAA
     Indication: Psoriasis
     Route: 058
     Dates: start: 20250225
  2. SKYRIZI [Suspect]
     Active Substance: RISANKIZUMAB-RZAA
     Route: 058
     Dates: start: 20250325
  3. SKYRIZI [Suspect]
     Active Substance: RISANKIZUMAB-RZAA
     Indication: Psoriasis
     Dosage: LAST ADMIN DATE 2025
     Route: 058
     Dates: start: 2025

REACTIONS (26)
  - VIth nerve paresis [Unknown]
  - Diplopia [Unknown]
  - Ophthalmoplegia [Unknown]
  - Exophthalmos [Unknown]
  - Vision blurred [Unknown]
  - Swelling [Unknown]
  - VIth nerve paralysis [Unknown]
  - Eye disorder [Unknown]
  - White blood cell count increased [Unknown]
  - Protein total increased [Unknown]
  - Inflammation [Unknown]
  - Myocardial injury [Unknown]
  - Eye swelling [Unknown]
  - Posture abnormal [Unknown]
  - Aspartate aminotransferase increased [Unknown]
  - Alanine aminotransferase increased [Unknown]
  - Gamma-glutamyltransferase increased [Unknown]
  - Blood lactate dehydrogenase increased [Unknown]
  - Blood creatine phosphokinase increased [Unknown]
  - Blood triglycerides increased [Unknown]
  - Blood cholesterol increased [Unknown]
  - Blood thyroid stimulating hormone increased [Unknown]
  - Nasal oedema [Unknown]
  - High density lipoprotein decreased [Unknown]
  - Eyelid disorder [Unknown]
  - Injection site irritation [Unknown]

NARRATIVE: CASE EVENT DATE: 20250101
